FAERS Safety Report 7375850-2 (Version None)
Quarter: 2011Q1

REPORT INFORMATION
  Report Type: 
  Country: None (occurrence: None)
  Receive Date: 20110325
  Receipt Date: 20110316
  Transmission Date: 20110831
  Serious: Yes (Other)
  Sender: FDA-Public Use
  Company Number: A0911581A

PATIENT
  Sex: Female
  Weight: 20 kg

DRUGS (1)
  1. AMOXICILLIN AND CLAVULANATE POTASSIUM [Suspect]
     Route: 065
     Dates: start: 20110128, end: 20110129

REACTIONS (3)
  - DRUG ADMINISTRATION ERROR [None]
  - HALLUCINATION [None]
  - PRODUCT QUALITY ISSUE [None]
